FAERS Safety Report 6484150-4 (Version None)
Quarter: 2009Q4

REPORT INFORMATION
  Report Type: 
  Country: None (occurrence: None)
  Receive Date: 20091203
  Receipt Date: 20091124
  Transmission Date: 20100525
  Serious: Yes (Hospitalization)
  Sender: FDA-Public Use
  Company Number: 8032503

PATIENT
  Age: 40 Year
  Sex: Female
  Weight: 48 kg

DRUGS (13)
  1. CDP870 [Suspect]
     Indication: CROHN'S DISEASE
     Dosage: 400 MG 1/2W SC
     Route: 058
     Dates: start: 20061218
  2. CDP870 [Suspect]
     Indication: CROHN'S DISEASE
     Dosage: 400 MG SC
     Route: 058
     Dates: end: 20070621
  3. IMUREK /00001501/ [Concomitant]
  4. ZOLPIDEM TARTRATE [Concomitant]
  5. MAGNESIUM VERLA /00648601/ [Concomitant]
  6. MIRTAZAPINE [Concomitant]
  7. EFFECTIN /00533902/ [Concomitant]
  8. ZYPREXA [Concomitant]
  9. TRAMAL [Concomitant]
  10. AMITRIPTYLINE HYDROCHLORIDE [Concomitant]
  11. FOLSAN [Concomitant]
  12. KALIORAL /01164701/ [Concomitant]
  13. CAL-D-VITA /00944201/ [Concomitant]

REACTIONS (10)
  - ASTHENIA [None]
  - AURICULAR SWELLING [None]
  - EAR PAIN [None]
  - ECZEMA [None]
  - FREQUENT BOWEL MOVEMENTS [None]
  - HYPOKALAEMIA [None]
  - MALNUTRITION [None]
  - PAROTITIS [None]
  - PROCTALGIA [None]
  - WEIGHT DECREASED [None]
